FAERS Safety Report 15743533 (Version 1)
Quarter: 2018Q4

REPORT INFORMATION
  Report Type: Spontaneous
  Country: US (occurrence: US)
  Receive Date: 20181220
  Receipt Date: 20181220
  Transmission Date: 20190205
  Serious: No
  Sender: FDA-Public Use
  Company Number: US-GLENMARK PHARMACEUTICALS-2018GMK038057

PATIENT

DRUGS (1)
  1. MUPIROCIN CREAM USP, 2% [Suspect]
     Active Substance: MUPIROCIN
     Indication: CELLULITIS
     Dosage: UNK
     Route: 065
     Dates: start: 20181023

REACTIONS (1)
  - Drug ineffective [Unknown]
